FAERS Safety Report 8368876-3 (Version None)
Quarter: 2012Q2

REPORT INFORMATION
  Report Type: 
  Country: None (occurrence: None)
  Receive Date: 20120518
  Receipt Date: 20120507
  Transmission Date: 20120825
  Serious: Yes (Hospitalization)
  Sender: FDA-Public Use
  Company Number: TN-ACCORD-013512

PATIENT
  Age: 36 Year
  Sex: Male

DRUGS (2)
  1. PREDNISONE [Concomitant]
     Indication: IMMUNOSUPPRESSION
  2. MYCOPHENOLATE MOFETIL [Suspect]
     Indication: IMMUNOSUPPRESSION

REACTIONS (3)
  - COLITIS [None]
  - METABOLIC ACIDOSIS [None]
  - WEIGHT DECREASED [None]
